FAERS Safety Report 6533638-6 (Version None)
Quarter: 2010Q1

REPORT INFORMATION
  Report Type: 
  Country: None (occurrence: None)
  Receive Date: 20100108
  Receipt Date: 20100108
  Transmission Date: 20100710
  Serious: Yes (Disabling, Other)
  Sender: FDA-Public Use
  Company Number: None

PATIENT
  Age: 43 Year
  Sex: Male
  Weight: 81.6475 kg

DRUGS (2)
  1. LORAZEPAM [Suspect]
     Indication: ANXIETY
     Dosage: VARIED VARIED PO
     Route: 048
     Dates: start: 20020420, end: 20090627
  2. NORTRIPTYLINE HCL [Suspect]
     Dosage: VARIED VARIED PO
     Route: 048
     Dates: start: 20090126, end: 20091231

REACTIONS (2)
  - DRUG DEPENDENCE [None]
  - DRUG TOLERANCE INCREASED [None]
